FAERS Safety Report 9543872 (Version 1)
Quarter: 2013Q3

REPORT INFORMATION
  Report Type: Spontaneous
  Country: GB (occurrence: GB)
  Receive Date: 20130923
  Receipt Date: 20130923
  Transmission Date: 20140515
  Serious: Yes (Hospitalization)
  Sender: FDA-Public Use
  Company Number: GB-GLAXOSMITHKLINE-B0922480A

PATIENT
  Age: 92 Year
  Sex: Female
  Weight: 75 kg

DRUGS (16)
  1. LAMOTRIGINE [Suspect]
     Indication: TRIGEMINAL NEURALGIA
     Dosage: 100MG PER DAY
     Route: 048
  2. LAMOTRIGINE [Suspect]
     Indication: TRIGEMINAL NEURALGIA
     Dosage: 50MG PER DAY
     Route: 048
  3. LAMOTRIGINE [Suspect]
     Indication: TRIGEMINAL NEURALGIA
     Dosage: 25MG PER DAY
     Route: 048
  4. GABAPENTIN [Concomitant]
  5. AMITRIPTYLINE [Concomitant]
  6. AMLODIPINE [Concomitant]
  7. BENDROFLUMETHIAZIDE [Concomitant]
  8. GAVISCON ADVANCE [Concomitant]
  9. CLARITHROMYCIN [Concomitant]
  10. FUROSEMIDE [Concomitant]
  11. MEROPENEM [Concomitant]
  12. CEFUROXIME [Concomitant]
  13. GENTAMICIN [Concomitant]
  14. METRONIDAZOLE [Concomitant]
  15. TEICOPLANIN [Concomitant]
  16. DALTEPARIN [Concomitant]

REACTIONS (2)
  - Thrombocytopenia [Recovering/Resolving]
  - Infection [Unknown]
